FAERS Safety Report 9235632 (Version 2)
Quarter: 2013Q2

REPORT INFORMATION
  Report Type: Spontaneous
  Country: US (occurrence: None)
  Receive Date: 20121031
  Receipt Date: 20130107
  Transmission Date: 20140414
  Serious: Yes (Other)
  Sender: FDA-Public Use
  Company Number: PHEH2012US016925

PATIENT
  Age: 50 Year
  Sex: Female

DRUGS (7)
  1. GILENYA (FTY) CAPSULE, 0.5MG [Suspect]
     Indication: MULTIPLE SCLEROSIS
     Route: 048
     Dates: start: 201101
  2. VITAMIN D3 (COLECALCIFEROL) [Concomitant]
  3. ZANTAC (RANITIDINE HYDROCHLORIDE) [Concomitant]
  4. ESTRACE (ESTRADIOL) [Concomitant]
  5. OXYBUTYNIN (OXYBUTYNIN) [Concomitant]
  6. NEURONTIN (GABAPENTIN) [Concomitant]
  7. KLONOPIN (CLONAZEPAM) (TABLETS) [Concomitant]

REACTIONS (3)
  - Cystitis [None]
  - Neurogenic bladder [None]
  - Urinary tract infection [None]
